FAERS Safety Report 18126856 (Version 3)
Quarter: 2020Q3

REPORT INFORMATION
  Report Type: Report from Study
  Country: None (occurrence: US)
  Receive Date: 20200810
  Receipt Date: 20200819
  Transmission Date: 20201103
  Serious: Yes (Other)
  Sender: FDA-Public Use
  Company Number: US-ABBVIE-20K-163-3513505-00

PATIENT
  Sex: Female

DRUGS (4)
  1. RINVOQ [Suspect]
     Active Substance: UPADACITINIB
     Route: 048
     Dates: start: 2020
  2. CALCIUM/VITAMIN D [Concomitant]
     Active Substance: CALCIUM\VITAMIN D
     Indication: PRODUCT USED FOR UNKNOWN INDICATION
  3. ENBREL [Suspect]
     Active Substance: ETANERCEPT
     Indication: PRODUCT USED FOR UNKNOWN INDICATION
     Route: 065
  4. RINVOQ [Suspect]
     Active Substance: UPADACITINIB
     Indication: RHEUMATOID ARTHRITIS
     Route: 048
     Dates: start: 202002, end: 202003

REACTIONS (16)
  - Rheumatoid lung [Recovering/Resolving]
  - Joint range of motion decreased [Unknown]
  - Dyspnoea [Unknown]
  - Drug eruption [Unknown]
  - Product storage error [Recovering/Resolving]
  - Illness [Unknown]
  - Asthma [Unknown]
  - Influenza [Recovered/Resolved]
  - Diarrhoea [Unknown]
  - Rash [Recovered/Resolved]
  - Therapeutic product effect delayed [Recovered/Resolved]
  - Pulmonary fibrosis [Recovering/Resolving]
  - Nasopharyngitis [Recovered/Resolved]
  - Bone density abnormal [Recovering/Resolving]
  - Pain [Unknown]
  - Asthenia [Unknown]

NARRATIVE: CASE EVENT DATE: 2020
